FAERS Safety Report 7784870-5 (Version None)
Quarter: 2011Q3

REPORT INFORMATION
  Report Type: 
  Country: None (occurrence: None)
  Receive Date: 20110928
  Receipt Date: 20110923
  Transmission Date: 20111222
  Serious: Yes (Life-Threatening)
  Sender: FDA-Public Use
  Company Number: FR-SANOFI-AVENTIS-2011SA019731

PATIENT
  Age: 66 Year
  Sex: Male

DRUGS (10)
  1. PRAVASTATIN [Suspect]
     Route: 048
  2. IRBESARTAN [Suspect]
     Route: 048
  3. BECLOMETHASONE DIPROPIONATE [Suspect]
     Route: 055
  4. SPIRIVA [Suspect]
     Route: 055
  5. PLAVIX [Suspect]
     Route: 048
  6. DRUG USED IN DIABETES [Suspect]
     Route: 048
  7. POTASSIUM CHLORIDE [Suspect]
     Route: 048
  8. DIAMOX SRC [Suspect]
     Route: 048
  9. MEDIATOR [Suspect]
     Route: 048
     Dates: start: 20000101, end: 20090101
  10. FORADIL [Suspect]
     Route: 055

REACTIONS (2)
  - PULMONARY ARTERIAL HYPERTENSION [None]
  - DYSPNOEA EXERTIONAL [None]
